FAERS Safety Report 11718542 (Version 1)
Quarter: 2015Q4

REPORT INFORMATION
  Report Type: Spontaneous
  Country: GB (occurrence: GB)
  Receive Date: 20151110
  Receipt Date: 20151110
  Transmission Date: 20160304
  Serious: Yes (Hospitalization)
  Sender: FDA-Public Use
  Company Number: GB-WATSON-2015-23501

PATIENT
  Age: 61 Year
  Sex: Female

DRUGS (3)
  1. TYLEX                              /00116401/ [Suspect]
     Active Substance: ACETAMINOPHEN\CODEINE PHOSPHATE
     Indication: PRODUCT USED FOR UNKNOWN INDICATION
     Dosage: UNK
     Route: 065
  2. DIAZEPAM (UNKNOWN) [Suspect]
     Active Substance: DIAZEPAM
     Indication: PRODUCT USED FOR UNKNOWN INDICATION
     Dosage: UNK
     Route: 065
  3. PARSTELIN [Suspect]
     Active Substance: ACETAMINOPHEN
     Indication: DEPRESSION
     Dosage: 3 DF, DAILY.
     Route: 048

REACTIONS (6)
  - Trismus [Unknown]
  - Depressed level of consciousness [Unknown]
  - Blood creatine phosphokinase increased [Recovering/Resolving]
  - Hypothermia [Recovering/Resolving]
  - Hypertension [Recovering/Resolving]
  - Pyrexia [Unknown]
